FAERS Safety Report 8445422-7 (Version None)
Quarter: 2012Q2

REPORT INFORMATION
  Report Type: 
  Country: None (occurrence: None)
  Receive Date: 20120618
  Receipt Date: 20120608
  Transmission Date: 20120825
  Serious: Yes (Other)
  Sender: FDA-Public Use
  Company Number: BR-PFIZER INC-2012139626

PATIENT
  Sex: Male

DRUGS (10)
  1. COSOPT [Concomitant]
  2. CITONEURIN [Concomitant]
     Dosage: UNK
     Dates: start: 20020101
  3. METFORMIN HCL [Concomitant]
     Dosage: UNK
     Dates: start: 20020101
  4. ALLOPURINOL [Concomitant]
     Dosage: UNK
     Dates: start: 20020101
  5. XALATAN [Suspect]
     Indication: GLAUCOMA
     Route: 047
  6. COLECALCIFEROL [Concomitant]
     Dosage: UNK
     Dates: start: 20020101
  7. MODURETIC 5-50 [Concomitant]
     Dosage: UNK
     Dates: start: 20020101
  8. LATANOPROST [Suspect]
     Indication: GLAUCOMA
     Dosage: 1.5 UG LATANOPROST / 150 UG TIMOLOL MALEATE  1X/DAY RIGHT EYE
     Route: 047
     Dates: start: 20020101
  9. ENDOFOLIN [Concomitant]
     Dosage: UNK
     Dates: start: 20020101
  10. LOZARTEC [Concomitant]
     Dosage: UNK
     Dates: start: 20020101

REACTIONS (5)
  - INTRAOCULAR PRESSURE TEST ABNORMAL [None]
  - DRUG INEFFECTIVE [None]
  - GLAUCOMA [None]
  - CATARACT [None]
  - EYE DISORDER [None]
